FAERS Safety Report 9944644 (Version 1)
Quarter: 2014Q1

REPORT INFORMATION
  Report Type: Report from Study
  Country: US (occurrence: US)
  Receive Date: 20140303
  Receipt Date: 20140303
  Transmission Date: 20141002
  Serious: No
  Sender: FDA-Public Use
  Company Number: US-ABBVIE-13P-163-1051367-00

PATIENT
  Age: 42 Year
  Sex: Male

DRUGS (4)
  1. HUMIRA [Suspect]
     Indication: PSORIASIS
     Dates: start: 201211
  2. CENFIZROCIL [Concomitant]
     Indication: PSORIASIS
     Dosage: 300 MG DAILY
  3. LISINOPRIL [Concomitant]
     Indication: HYPERTENSION
  4. ASPIRIN OTC [Concomitant]
     Indication: PAIN

REACTIONS (2)
  - White blood cell count decreased [Unknown]
  - Injection site bruising [Recovering/Resolving]
